FAERS Safety Report 7365821-4 (Version None)
Quarter: 2011Q1

REPORT INFORMATION
  Report Type: 
  Country: None (occurrence: None)
  Receive Date: 20110322
  Receipt Date: 20110314
  Transmission Date: 20110831
  Serious: Yes (Other)
  Sender: FDA-Public Use
  Company Number: US-TEVA-271445USA

PATIENT
  Age: 28 Year
  Sex: Female

DRUGS (10)
  1. CYTARABINE HYDROCHLORIDE 50 MG/ML; 100 MG/ML [Suspect]
     Indication: CHEMOTHERAPY
     Dosage: 3.2 G/M2
     Route: 042
  2. VINCRISTINE [Suspect]
     Indication: CHEMOTHERAPY
  3. ETOPOSIDE [Suspect]
     Indication: CHEMOTHERAPY
     Dosage: 60 MG/M2/DAY
  4. PREDNISONE [Suspect]
     Route: 048
  5. RITUXIMAB [Suspect]
     Indication: CHEMOTHERAPY
  6. MESNA [Suspect]
     Indication: CHEMOTHERAPY
     Dosage: 1500 MG/M2/DAY
  7. IFOSFAMIDE [Suspect]
     Indication: CHEMOTHERAPY
     Dosage: 1500 MG/M2/DAY
  8. CYCLOPHOSPHAMIDE [Suspect]
     Indication: CHEMOTHERAPY
     Route: 042
  9. CYTARABINE [Suspect]
     Indication: CHEMOTHERAPY
     Route: 037
  10. DOXORUBICIN HCL [Suspect]
     Indication: CHEMOTHERAPY

REACTIONS (5)
  - INTRA-UTERINE DEATH [None]
  - NAUSEA [None]
  - EROSIVE OESOPHAGITIS [None]
  - FEBRILE NEUTROPENIA [None]
  - VOMITING [None]
